FAERS Safety Report 11401497 (Version 1)
Quarter: 2015Q3

REPORT INFORMATION
  Report Type: Spontaneous
  Country: GB (occurrence: GB)
  Receive Date: 20150821
  Receipt Date: 20150821
  Transmission Date: 20151125
  Serious: Yes (Other)
  Sender: FDA-Public Use
  Company Number: GB-HOSPIRA-2976904

PATIENT

DRUGS (2)
  1. CALCIUM FOLINATE [Suspect]
     Active Substance: LEUCOVORIN CALCIUM
     Indication: SUPPLEMENTATION THERAPY
     Dosage: WEEKLY
  2. METHOTREXATE [Suspect]
     Active Substance: METHOTREXATE
     Indication: TROPICAL SPASTIC PARESIS
     Dosage: INITIAL DOSE: 7.5 MG, MAXIMUM DOSE: 15 MG, WEEKLY

REACTIONS (1)
  - Hepatotoxicity [Unknown]
